FAERS Safety Report 18932065 (Version 1)
Quarter: 2021Q1

REPORT INFORMATION
  Report Type: Spontaneous
  Country: FR (occurrence: FR)
  Receive Date: 20210224
  Receipt Date: 20210224
  Transmission Date: 20210420
  Serious: Yes (Other)
  Sender: FDA-Public Use
  Company Number: FR-BIOVITRUM-2021FR1827

PATIENT
  Age: 9 Year
  Sex: Male
  Weight: 28 kg

DRUGS (2)
  1. KINERET [Suspect]
     Active Substance: ANAKINRA
     Indication: AUTOIMMUNE ENCEPHALOPATHY
     Route: 058
     Dates: start: 20201126, end: 20201202
  2. TRUXIMA [Suspect]
     Active Substance: RITUXIMAB-ABBS
     Indication: ENCEPHALITIS AUTOIMMUNE
     Dosage: 350 MG / DOSE 1 ADMINISTRATION OF 100 MG
     Route: 042
     Dates: start: 20201112, end: 20201112

REACTIONS (2)
  - Abdominal pain [Recovered/Resolved]
  - Pyrexia [Recovered/Resolved]

NARRATIVE: CASE EVENT DATE: 20201201
